FAERS Safety Report 6426701-1 (Version None)
Quarter: 2009Q4

REPORT INFORMATION
  Report Type: 
  Country: None (occurrence: None)
  Receive Date: 20091104
  Receipt Date: 20091028
  Transmission Date: 20100525
  Serious: Yes (Hospitalization, Other)
  Sender: FDA-Public Use
  Company Number: BE-ELI_LILLY_AND_COMPANY-BE200908005925

PATIENT
  Sex: Male

DRUGS (14)
  1. HUMALOG MIX 75/25 [Suspect]
     Indication: TYPE 1 DIABETES MELLITUS
     Dosage: UNK, 3/D
     Route: 058
     Dates: end: 20090101
  2. HUMALOG [Suspect]
     Indication: TYPE 1 DIABETES MELLITUS
     Dosage: UNK, 3/D
     Route: 058
  3. HUMALOG [Suspect]
     Dosage: 6 U, EACH MORNING
     Route: 058
     Dates: start: 20090101
  4. HUMALOG [Suspect]
     Dosage: 8 U, OTHER (NOON)
     Route: 058
     Dates: start: 20090101
  5. HUMALOG [Suspect]
     Dosage: 8 U, EACH EVENING
     Route: 058
     Dates: start: 20090101
  6. LEVEMIR [Concomitant]
     Indication: TYPE 1 DIABETES MELLITUS
     Dosage: UNK, EACH EVENING
     Route: 065
  7. LEVEMIR [Concomitant]
     Dosage: 12 U, DAILY (1/D)
     Route: 065
     Dates: start: 20090101
  8. TRITACE [Concomitant]
     Dosage: 5 D/F, UNKNOWN
     Route: 065
  9. TEVETEN [Concomitant]
     Dosage: UNK, UNKNOWN
     Route: 065
  10. LEVOTHYROXINE SODIUM [Concomitant]
     Dosage: 175 D/F, UNKNOWN
     Route: 065
  11. LASIX [Concomitant]
     Dosage: UNK, UNKNOWN
     Route: 065
  12. MEDROL [Concomitant]
     Dosage: UNK, UNKNOWN
     Route: 065
  13. LEDERTREXATE [Concomitant]
     Dosage: UNK, UNKNOWN
     Route: 065
  14. DIACURE [Concomitant]
     Dosage: UNK, UNKNOWN
     Route: 048

REACTIONS (3)
  - DRUG DISPENSING ERROR [None]
  - HYPOGLYCAEMIC COMA [None]
  - WRONG DRUG ADMINISTERED [None]
